FAERS Safety Report 8901030 (Version 2)
Quarter: 2013Q1

REPORT INFORMATION
  Report Type: Spontaneous
  Country: US (occurrence: US)
  Receive Date: 20121109
  Receipt Date: 20130129
  Transmission Date: 20140127
  Serious: Yes (Hospitalization, Other)
  Sender: FDA-Public Use
  Company Number: US-BAXTER-2012BAX022263

PATIENT
  Age: 66 None
  Sex: Male

DRUGS (3)
  1. DIANEAL LOW CALCIUM [Suspect]
     Indication: PERITONEAL DIALYSIS
     Route: 033
     Dates: start: 20101203
  2. DIANEAL LOW CALCIUM [Suspect]
     Route: 033
     Dates: start: 20101203
  3. DIANEAL LOW CALCIUM (ULTRABAG) [Suspect]
     Indication: PERITONEAL DIALYSIS
     Route: 033
     Dates: start: 20101203

REACTIONS (4)
  - Gastrointestinal haemorrhage [Unknown]
  - Haemoptysis [Unknown]
  - Gastric ulcer [Unknown]
  - Abdominal distension [Unknown]
